FAERS Safety Report 6037863-2 (Version None)
Quarter: 2009Q1

REPORT INFORMATION
  Report Type: 
  Country: None (occurrence: None)
  Receive Date: 20090115
  Receipt Date: 20090109
  Transmission Date: 20090719
  Serious: Yes (Hospitalization)
  Sender: FDA-Public Use
  Company Number: US-ELI_LILLY_AND_COMPANY-US200812001243

PATIENT
  Sex: Male
  Weight: 93.878 kg

DRUGS (8)
  1. SOMATROPIN [Suspect]
     Indication: GROWTH HORMONE DEFICIENCY
     Dosage: 0.1 MG, DAILY (1/D)
     Route: 058
     Dates: start: 20070321, end: 20080826
  2. LEVOXYL [Concomitant]
     Indication: HYPOTHYROIDISM
     Dates: start: 20030101
  3. ANDROGEL [Concomitant]
     Indication: HYPOGONADISM
     Dates: start: 20010101
  4. CRESTOR [Concomitant]
     Indication: HYPERLIPIDAEMIA
     Dates: start: 20050101
  5. TRICOR [Concomitant]
     Indication: HYPERLIPIDAEMIA
     Dosage: 145 MG, UNK
     Dates: start: 20050101
  6. TIAZAC [Concomitant]
     Indication: HYPERTENSION
     Dates: start: 20060101
  7. ZOLOFT [Concomitant]
     Indication: DEPRESSION
     Dates: start: 20030101
  8. WELLBUTRIN [Concomitant]
     Indication: DEPRESSION
     Dates: start: 20080101

REACTIONS (1)
  - MENINGIOMA [None]
